FAERS Safety Report 10171711 (Version 1)
Quarter: 2014Q2

REPORT INFORMATION
  Report Type: Spontaneous
  Country: US (occurrence: None)
  Receive Date: 20140512
  Receipt Date: 20140512
  Transmission Date: 20141212
  Serious: Yes (Hospitalization)
  Sender: FDA-Public Use
  Company Number: 2334534

PATIENT
  Age: 20 Year
  Sex: Female

DRUGS (5)
  1. LIPOSYN [Suspect]
     Indication: TOXICITY TO VARIOUS AGENTS
     Dosage: 1.5 ML/KG, UNKNOWN, INTRAVENOUS BOLUS
     Route: 040
  2. LORAZEPAM [Concomitant]
  3. FOSPHENYTOIN [Concomitant]
  4. SODIUM BICARBONATE [Concomitant]
  5. EPINEPHRINE [Concomitant]

REACTIONS (6)
  - Pancreatitis [None]
  - Laboratory test interference [None]
  - Hyperlipidaemia [None]
  - Bradycardia [None]
  - Blood pH decreased [None]
  - Blood lactic acid increased [None]
